FAERS Safety Report 19922559 (Version 2)
Quarter: 2021Q4

REPORT INFORMATION
  Report Type: Report from Study
  Country: None (occurrence: CA)
  Receive Date: 20211006
  Receipt Date: 20211025
  Transmission Date: 20220303
  Serious: Yes (Other)
  Sender: FDA-Public Use
  Company Number: CA-ABBVIE-21K-028-3915888-00

PATIENT
  Age: 62 Year
  Sex: Female
  Weight: 83.99 kg

DRUGS (1)
  1. HUMIRA [Suspect]
     Active Substance: ADALIMUMAB
     Indication: Hidradenitis
     Route: 058
     Dates: start: 20210324, end: 20210714

REACTIONS (4)
  - Suicidal ideation [Recovered/Resolved]
  - Female genital tract fistula [Not Recovered/Not Resolved]
  - Tearfulness [Unknown]
  - Fistula [Recovering/Resolving]

NARRATIVE: CASE EVENT DATE: 20210101
